FAERS Safety Report 7370781-6 (Version None)
Quarter: 2011Q1

REPORT INFORMATION
  Report Type: 
  Country: None (occurrence: None)
  Receive Date: 20110324
  Receipt Date: 20110315
  Transmission Date: 20110831
  Serious: Yes (Other)
  Sender: FDA-Public Use
  Company Number: SI-AMGEN-SVNSP2011014681

PATIENT
  Age: 71 Year
  Sex: Male
  Weight: 83 kg

DRUGS (8)
  1. ENBREL [Suspect]
     Indication: RHEUMATOID ARTHRITIS
     Dosage: 50 MG, WEEKLY
     Route: 058
     Dates: start: 20090916
  2. RAWEL [Concomitant]
     Dosage: 1.5 MG, 1X/DAY
     Route: 048
  3. METHOTREXAT                        /00113802/ [Suspect]
     Dosage: 10 MG, WEEKLY
  4. FINASTERIDE [Concomitant]
     Dosage: 5 MG, 1X/DAY
     Route: 048
  5. FOLACIN                            /00024201/ [Concomitant]
     Dosage: 5 MG, WEEKLY
     Route: 048
  6. ASPIRIN [Concomitant]
     Dosage: 100 MG, 1X/DAY
     Route: 048
  7. NALGESIN                           /00256201/ [Concomitant]
     Dosage: 550 MG, 2X/DAY
     Route: 048
  8. TARKA                              /01323401/ [Concomitant]
     Dosage: [VERAPAMIL HYDROCHLORIDE 180 MG]/ [TRANDOLAPRIL 2 MG]
     Route: 048

REACTIONS (2)
  - PULMONARY EMBOLISM [None]
  - DEEP VEIN THROMBOSIS [None]
